FAERS Safety Report 7200529-7 (Version None)
Quarter: 2010Q4

REPORT INFORMATION
  Report Type: 
  Country: None (occurrence: None)
  Receive Date: 20101228
  Receipt Date: 20101220
  Transmission Date: 20110411
  Serious: Yes (Death, Other)
  Sender: FDA-Public Use
  Company Number: US-JNJFOC-20100900216

PATIENT
  Sex: Female

DRUGS (2)
  1. STELARA [Suspect]
     Indication: PSORIASIS
     Dosage: 3 DOSES TO DATE.
     Route: 058
  2. STELARA [Suspect]
     Dosage: 3 DOSES TO DATE.
     Route: 058

REACTIONS (3)
  - ARTERIOSCLEROSIS [None]
  - INTESTINAL OBSTRUCTION [None]
  - SEPSIS [None]
